FAERS Safety Report 5799886-8 (Version None)
Quarter: 2008Q3

REPORT INFORMATION
  Report Type: 
  Country: None (occurrence: None)
  Receive Date: 20080701
  Receipt Date: 20080616
  Transmission Date: 20090109
  Serious: Yes (Other)
  Sender: FDA-Public Use
  Company Number: 2008AL006989

PATIENT
  Sex: Male

DRUGS (2)
  1. DIGOXIN TAB [Suspect]
     Route: 048
  2. ANTIHYPERTENSIVE MEDICATIONS (UNSPECIFIED) [Concomitant]

REACTIONS (4)
  - BLOOD PRESSURE DECREASED [None]
  - CEREBROVASCULAR ACCIDENT [None]
  - DIARRHOEA [None]
  - HEART RATE DECREASED [None]
